FAERS Safety Report 17181777 (Version 1)
Quarter: 2019Q4

REPORT INFORMATION
  Report Type: Spontaneous
  Country: SE (occurrence: SE)
  Receive Date: 20191220
  Receipt Date: 20191220
  Transmission Date: 20200122
  Serious: Yes (Hospitalization, Other)
  Sender: FDA-Public Use
  Company Number: SE-AUROBINDO-AUR-APL-2019-105642

PATIENT
  Age: 25 Year
  Sex: Female

DRUGS (6)
  1. THERALEN [Suspect]
     Active Substance: TRIMEPRAZINE
     Indication: PRODUCT USED FOR UNKNOWN INDICATION
     Dosage: UNCLEAR AMOUNT
     Route: 065
     Dates: start: 20180206, end: 20180206
  2. PROPAVAN [Suspect]
     Active Substance: PROPIOMAZINE
     Indication: PRODUCT USED FOR UNKNOWN INDICATION
     Dosage: 800 MILLIGRAM
     Route: 048
     Dates: start: 20180206, end: 20180206
  3. CITALOPRAM [Suspect]
     Active Substance: CITALOPRAM HYDROBROMIDE
     Indication: PRODUCT USED FOR UNKNOWN INDICATION
     Dosage: 100 MILLIGRAM
     Route: 048
     Dates: start: 20180206, end: 20180206
  4. SIFROL [Suspect]
     Active Substance: PRAMIPEXOLE
     Indication: PRODUCT USED FOR UNKNOWN INDICATION
     Dosage: 2.08 MILLIGRAM
     Route: 048
     Dates: start: 20180206, end: 20180206
  5. METOPROLOL. [Suspect]
     Active Substance: METOPROLOL
     Indication: PRODUCT USED FOR UNKNOWN INDICATION
     Dosage: 250 MILLIGRAM
     Route: 048
     Dates: start: 20180206, end: 20180206
  6. IMOVANE [Suspect]
     Active Substance: ZOPICLONE
     Indication: PRODUCT USED FOR UNKNOWN INDICATION
     Dosage: 225 MILLIGRAM
     Route: 065
     Dates: start: 20180206, end: 20180206

REACTIONS (5)
  - Intentional self-injury [Unknown]
  - Blood pressure decreased [Unknown]
  - Intentional overdose [Unknown]
  - Fatigue [Unknown]
  - Snoring [Unknown]

NARRATIVE: CASE EVENT DATE: 20180206
